FAERS Safety Report 7724402-0 (Version None)
Quarter: 2011Q3

REPORT INFORMATION
  Report Type: 
  Country: None (occurrence: None)
  Receive Date: 20110901
  Receipt Date: 20110830
  Transmission Date: 20111222
  Serious: Yes (Other)
  Sender: FDA-Public Use
  Company Number: SE-PFIZER INC-2011201489

PATIENT
  Age: 67 Year
  Sex: Female

DRUGS (4)
  1. LYRICA [Suspect]
     Indication: FIBROMYALGIA
     Dosage: 150 MG DAILY
     Dates: start: 20060101
  2. OMEPRAZOLE [Concomitant]
     Dosage: UNK
  3. LYRICA [Suspect]
     Dosage: 50 MG DAILY
  4. OXAZEPAM [Concomitant]
     Dosage: UNK

REACTIONS (9)
  - CONFUSIONAL STATE [None]
  - MEMORY IMPAIRMENT [None]
  - SOCIAL AVOIDANT BEHAVIOUR [None]
  - INDIFFERENCE [None]
  - FOOD CRAVING [None]
  - MENTAL IMPAIRMENT [None]
  - AMNESIA [None]
  - PERSONALITY CHANGE [None]
  - DECREASED APPETITE [None]
